FAERS Safety Report 15306384 (Version 1)
Quarter: 2018Q3

REPORT INFORMATION
  Report Type: Spontaneous
  Country: US (occurrence: US)
  Receive Date: 20180822
  Receipt Date: 20180822
  Transmission Date: 20181010
  Serious: No
  Sender: FDA-Public Use
  Company Number: US-ASTRAZENECA-2018SE95637

PATIENT
  Sex: Male

DRUGS (2)
  1. TAGRISSO [Suspect]
     Active Substance: OSIMERTINIB
     Dosage: 160, UNKNOWN FREQUENCY
     Route: 048
  2. TAGRISSO [Suspect]
     Active Substance: OSIMERTINIB
     Dosage: 80, UNKNOWN FREQUENCY
     Route: 048

REACTIONS (4)
  - Diarrhoea [Unknown]
  - Blood pressure decreased [Unknown]
  - Off label use [Unknown]
  - Hypophagia [Unknown]
